FAERS Safety Report 22202707 (Version 2)
Quarter: 2023Q2

REPORT INFORMATION
  Report Type: Spontaneous
  Country: IT (occurrence: IT)
  Receive Date: 20230412
  Receipt Date: 20230420
  Transmission Date: 20230722
  Serious: Yes (Other)
  Sender: FDA-Public Use
  Company Number: IT-ROCHE-3322092

PATIENT
  Age: 17 Year
  Sex: Female
  Weight: 40 kg

DRUGS (9)
  1. RITUXIMAB [Suspect]
     Active Substance: RITUXIMAB
     Indication: Primary mediastinal large B-cell lymphoma stage III
     Dosage: UNK
     Route: 042
     Dates: start: 20211118, end: 20220430
  2. PEMBROLIZUMAB [Suspect]
     Active Substance: PEMBROLIZUMAB
     Indication: Primary mediastinal large B-cell lymphoma stage III
     Dosage: UNK
     Route: 065
     Dates: start: 20220912, end: 20221114
  3. ETOPOSIDE [Suspect]
     Active Substance: ETOPOSIDE
     Indication: Primary mediastinal large B-cell lymphoma stage III
     Dosage: UNK
     Route: 065
     Dates: start: 20230324
  4. OXALIPLATIN [Suspect]
     Active Substance: OXALIPLATIN
     Indication: Primary mediastinal large B-cell lymphoma stage III
     Dosage: UNK
     Route: 065
  5. GEMCITABINE [Suspect]
     Active Substance: GEMCITABINE
     Indication: Primary mediastinal large B-cell lymphoma stage III
     Dosage: UNK
     Route: 065
  6. CHOLECALCIFEROL [Concomitant]
     Active Substance: CHOLECALCIFEROL
     Dosage: UNK
  7. ONDANSETRON [Concomitant]
     Active Substance: ONDANSETRON
     Dosage: UNK
  8. ALLOPURINOL [Concomitant]
     Active Substance: ALLOPURINOL
     Dosage: UNK
  9. OMEPRAZOLE [Concomitant]
     Active Substance: OMEPRAZOLE
     Dosage: UNK

REACTIONS (14)
  - Blood fibrinogen decreased [Unknown]
  - Blood lactate dehydrogenase increased [Unknown]
  - COVID-19 [Unknown]
  - Disease progression [Unknown]
  - Blood sodium decreased [Unknown]
  - Blood uric acid decreased [Unknown]
  - Gamma-glutamyltransferase increased [Unknown]
  - Haematocrit decreased [Unknown]
  - Lymphocyte count decreased [Unknown]
  - Neutrophil count increased [Unknown]
  - Platelet count decreased [Unknown]
  - Red blood cell count decreased [Unknown]
  - White blood cell count decreased [Unknown]
  - Off label use [Unknown]

NARRATIVE: CASE EVENT DATE: 20211118
